FAERS Safety Report 6736727-6 (Version None)
Quarter: 2010Q2

REPORT INFORMATION
  Report Type: 
  Country: None (occurrence: None)
  Receive Date: 20100521
  Receipt Date: 20100513
  Transmission Date: 20101027
  Serious: Yes (Hospitalization)
  Sender: FDA-Public Use
  Company Number: TW-WYE-H13752310

PATIENT
  Sex: Male
  Weight: 62.5 kg

DRUGS (4)
  1. TEMSIROLIMUS [Suspect]
     Indication: RENAL CELL CARCINOMA
     Route: 042
     Dates: start: 20100211, end: 20100219
  2. TEMSIROLIMUS [Suspect]
     Dosage: 25 MG - FREQUENCY NOT SPECIFIED
     Route: 042
     Dates: start: 20100226
  3. BEVACIZUMAB [Suspect]
     Indication: RENAL CELL CARCINOMA
     Route: 042
     Dates: start: 20100211, end: 20100219
  4. BEVACIZUMAB [Suspect]
     Dosage: 625 MG - FREQUENCY NOT SPECIFIED
     Route: 042
     Dates: start: 20100226

REACTIONS (2)
  - HYPOPHAGIA [None]
  - VOMITING [None]
